FAERS Safety Report 9258389 (Version 1)
Quarter: 2013Q2

REPORT INFORMATION
  Report Type: Spontaneous
  Country: US (occurrence: US)
  Receive Date: 20130426
  Receipt Date: 20130426
  Transmission Date: 20140414
  Serious: Yes (Other)
  Sender: FDA-Public Use
  Company Number: US-PFIZER INC-2013128818

PATIENT
  Age: 21 Year
  Sex: Female

DRUGS (3)
  1. GEODON [Suspect]
     Indication: EMOTIONAL DISORDER
     Dosage: 60 MG, 2X/DAY
     Dates: end: 20130419
  2. GEODON [Suspect]
     Indication: MENTAL DISORDER
  3. PAROXETINE [Concomitant]
     Dosage: 10 MG, 1X/DAY

REACTIONS (3)
  - Hallucination, auditory [Unknown]
  - Paranoia [Unknown]
  - Malaise [Unknown]
